FAERS Safety Report 7397951-5 (Version None)
Quarter: 2011Q2

REPORT INFORMATION
  Report Type: 
  Country: None (occurrence: None)
  Receive Date: 20110406
  Receipt Date: 20101019
  Transmission Date: 20111010
  Serious: Yes (Hospitalization)
  Sender: FDA-Public Use
  Company Number: US-BAYER-201016394NA

PATIENT
  Sex: Female
  Weight: 125 kg

DRUGS (14)
  1. REQUIP [Concomitant]
     Dosage: 3 MG, QD
  2. THYROID TAB [Concomitant]
     Dosage: 60 MG, QD
  3. CELEBREX [Concomitant]
     Dosage: 200 MG, QD
  4. CYMBALTA [Concomitant]
     Dosage: 60 MG, QD
  5. METFORMIN [Concomitant]
     Dosage: 500 MG, BID
  6. METOPROLOL SUCCINATE [Concomitant]
     Dosage: 50 MG, QD
  7. WARFARIN SODIUM [Concomitant]
  8. VICODIN [Concomitant]
     Dosage: 500 MG, UNK
  9. AMBIEN CR [Concomitant]
     Dosage: 12.5 MG, UNK
  10. ZOCOR [Concomitant]
     Dosage: 40 MG, QD
  11. AMOXICILLIN [Concomitant]
     Indication: INFECTION
     Dosage: 500 MG, UNK
  12. PREVACID [Concomitant]
     Dosage: 30 MG, QD
  13. YAZ [Suspect]
     Indication: PRODUCT USED FOR UNKNOWN INDICATION
     Route: 048
  14. PRINZIDE [Concomitant]
     Dosage: 12.5 MG, BID

REACTIONS (1)
  - INTRACRANIAL VENOUS SINUS THROMBOSIS [None]
